FAERS Safety Report 9562805 (Version 4)
Quarter: 2013Q4

REPORT INFORMATION
  Report Type: Report from Study
  Country: MX (occurrence: MX)
  Receive Date: 20130927
  Receipt Date: 20131112
  Transmission Date: 20140711
  Serious: Yes (Other)
  Sender: FDA-Public Use
  Company Number: MX-BRISTOL-MYERS SQUIBB COMPANY-19468586

PATIENT
  Age: 26 Year
  Sex: Female
  Weight: 40.7 kg

DRUGS (5)
  1. BELATACEPT [Suspect]
     Indication: RENAL TRANSPLANT
     Route: 042
     Dates: start: 20070521
  2. MYCOPHENOLATE MOFETIL [Suspect]
     Indication: IMMUNOSUPPRESSION
     Dosage: 20MAY-21MAY07?22MAY07-ONG?22MAY09-06JUL09?07JUL09-ONG?16FEB10-AUG 08?24-SEP-2013-ONG
     Dates: start: 20070520
  3. PREDNISONE [Suspect]
     Indication: IMMUNOSUPPRESSION
     Dosage: 10JN-12JN7,1JN7-3JN7,4JN-6JN7,7JN7-9JN7,13JN7-ONG,27NV7-ONG,22JN7-26NV7,27NV7-16MR9,17MR9-ONG
     Dates: start: 20070522
  4. AZATHIOPRINE [Concomitant]
     Dates: start: 20130809, end: 20130923
  5. OMEPRAZOLE [Concomitant]
     Dosage: 19AUG09-26OCT09?13JAN10-ONG?19AUGU09-18JAN11?17JAN12-CONT
     Dates: start: 20090819

REACTIONS (1)
  - Rash generalised [Recovered/Resolved]
